FAERS Safety Report 13276238 (Version 1)
Quarter: 2017Q1

REPORT INFORMATION
  Report Type: Spontaneous
  Country: US (occurrence: US)
  Receive Date: 20170228
  Receipt Date: 20170228
  Transmission Date: 20170428
  Serious: Yes (Disabling)
  Sender: FDA-Public Use
  Company Number: None

PATIENT
  Age: 8 Year
  Sex: Female
  Weight: 33.75 kg

DRUGS (3)
  1. ADDERALL [Concomitant]
     Active Substance: AMPHETAMINE ASPARTATE\AMPHETAMINE SULFATE\DEXTROAMPHETAMINE SACCHARATE\DEXTROAMPHETAMINE SULFATE
  2. HEARING AIDES [Concomitant]
  3. POLYETHYLENE GLYCOL 3350 NF [Suspect]
     Active Substance: POLYETHYLENE GLYCOL 3350
     Indication: CONSTIPATION
     Dosage: QUANTITY:1 CAPFUL;OTHER ROUTE:IN CLEAR FLUID?
     Dates: start: 20110202, end: 20170215

REACTIONS (5)
  - Seizure like phenomena [None]
  - Anxiety [None]
  - Aggression [None]
  - Mood swings [None]
  - Social problem [None]

NARRATIVE: CASE EVENT DATE: 20110228
